FAERS Safety Report 14928250 (Version 1)
Quarter: 2018Q2

REPORT INFORMATION
  Report Type: Spontaneous
  Country: US (occurrence: US)
  Receive Date: 20180523
  Receipt Date: 20180523
  Transmission Date: 20180711
  Serious: Yes (Hospitalization, Other)
  Sender: FDA-Public Use
  Company Number: US-AUROBINDO-AUR-APL-2018-025958

PATIENT
  Age: 12 Year
  Sex: Male

DRUGS (3)
  1. CLONIDINE. [Concomitant]
     Active Substance: CLONIDINE
     Dosage: 0.3 MILLIGRAM, DAILY
     Route: 065
  2. ARIPIPRAZOLE. [Suspect]
     Active Substance: ARIPIPRAZOLE
     Indication: MANIA
     Dosage: 2.5 MILLIGRAM, DAILY
     Route: 065
  3. CLONIDINE. [Concomitant]
     Active Substance: CLONIDINE
     Indication: PRODUCT USED FOR UNKNOWN INDICATION
     Dosage: 0.2 MILLIGRAM, TWO TIMES A DAY
     Route: 065

REACTIONS (16)
  - Abnormal behaviour [Recovering/Resolving]
  - Tremor [Recovering/Resolving]
  - Slow speech [Recovering/Resolving]
  - Urinary incontinence [Recovering/Resolving]
  - Clonus [Recovering/Resolving]
  - Echopraxia [Recovering/Resolving]
  - Mydriasis [Recovering/Resolving]
  - Serotonin syndrome [Recovering/Resolving]
  - Hypokinesia [Recovering/Resolving]
  - Cogwheel rigidity [Recovering/Resolving]
  - Drooling [Recovering/Resolving]
  - Oropharyngeal pain [Recovering/Resolving]
  - Abdominal pain [Recovering/Resolving]
  - Akathisia [Recovering/Resolving]
  - Staring [Recovering/Resolving]
  - Hypertension [Recovering/Resolving]
